FAERS Safety Report 7220721-5 (Version None)
Quarter: 2011Q1

REPORT INFORMATION
  Report Type: 
  Country: None (occurrence: None)
  Receive Date: 20110111
  Receipt Date: 20110110
  Transmission Date: 20110831
  Serious: Yes (Hospitalization, Other)
  Sender: FDA-Public Use
  Company Number: US-AMGEN-QUU428634

PATIENT

DRUGS (2)
  1. NPLATE [Suspect]
     Indication: IDIOPATHIC THROMBOCYTOPENIC PURPURA
     Dosage: 2 A?G/KG, UNK
     Dates: start: 20100603
  2. CORTICOSTEROID NOS [Concomitant]
     Dosage: UNK UNK, UNK
     Dates: start: 20100601, end: 20100610

REACTIONS (9)
  - DIABETES MELLITUS INADEQUATE CONTROL [None]
  - OVARIAN CANCER [None]
  - RENAL FAILURE [None]
  - NECROSIS [None]
  - POSTOPERATIVE WOUND COMPLICATION [None]
  - HEPATIC CIRRHOSIS [None]
  - ABSCESS [None]
  - CELLULITIS [None]
  - ASCITES [None]
